FAERS Safety Report 8740252 (Version 5)
Quarter: 2013Q2

REPORT INFORMATION
  Report Type: Spontaneous
  Country: US (occurrence: US)
  Receive Date: 20120823
  Receipt Date: 20130419
  Transmission Date: 20140414
  Serious: Yes (Hospitalization, Other)
  Sender: FDA-Public Use
  Company Number: US-PFIZER INC-2012203722

PATIENT
  Age: 70 Year
  Sex: Male

DRUGS (3)
  1. LYRICA [Suspect]
     Dosage: UNK
     Dates: start: 201207
  2. LYRICA [Suspect]
     Dosage: 10 LYRICA PILLS AT ONCE
  3. OXYCODONE HYDROCHLORIDE [Suspect]
     Dosage: UNK

REACTIONS (9)
  - Abasia [Unknown]
  - Myelitis transverse [Unknown]
  - Hypoaesthesia [Unknown]
  - Pain [Unknown]
  - Accidental overdose [Unknown]
  - Tremor [Unknown]
  - Disorientation [Unknown]
  - Confusional state [Unknown]
  - Activities of daily living impaired [Unknown]
